FAERS Safety Report 5215643-5 (Version None)
Quarter: 2007Q1

REPORT INFORMATION
  Report Type: 
  Country: None (occurrence: None)
  Receive Date: 20070123
  Receipt Date: 20070109
  Transmission Date: 20070707
  Serious: Yes (Hospitalization, Other)
  Sender: FDA-Public Use
  Company Number: NL-BRISTOL-MYERS SQUIBB COMPANY-13623194

PATIENT
  Age: 53 Year
  Sex: Female

DRUGS (8)
  1. METFORMIN HCL [Suspect]
     Indication: DIABETES MELLITUS
     Route: 048
     Dates: start: 20060619
  2. BLINDED: GLIMEPIRIDE [Interacting]
     Indication: DIABETES MELLITUS NON-INSULIN-DEPENDENT
     Dates: start: 20060710
  3. BLINDED: LIRAGLUTIDE [Interacting]
     Indication: DIABETES MELLITUS
     Route: 048
     Dates: start: 20060710, end: 20061219
  4. BLINDED: PLACEBO [Interacting]
     Indication: DIABETES MELLITUS
     Dates: start: 20060710, end: 20061219
  5. LIPITOR [Concomitant]
  6. ENALAPRIL MALEATE [Concomitant]
  7. ATENOLOL [Concomitant]
  8. ASCAL CARDIO [Concomitant]

REACTIONS (1)
  - LUNG CARCINOMA CELL TYPE UNSPECIFIED RECURRENT [None]
